FAERS Safety Report 4377731-5 (Version None)
Quarter: 2004Q2

REPORT INFORMATION
  Report Type: 
  Country: None (occurrence: None)
  Receive Date: 20040608
  Receipt Date: 20040526
  Transmission Date: 20050107
  Serious: Yes (Other)
  Sender: FDA-Public Use
  Company Number: STA-AE-04-MTX-237

PATIENT
  Age: 76 Year
  Sex: Female

DRUGS (1)
  1. METHOTREXATE [Suspect]
     Indication: RHEUMATOID ARTHRITIS
     Dosage: 2 MG, ORAL
     Route: 048
     Dates: end: 20010101

REACTIONS (4)
  - ANAEMIA MEGALOBLASTIC [None]
  - FOLATE DEFICIENCY [None]
  - MEAN CELL VOLUME INCREASED [None]
  - PNEUMONIA MYCOPLASMAL [None]
